FAERS Safety Report 6271693-1 (Version None)
Quarter: 2009Q3

REPORT INFORMATION
  Report Type: 
  Country: None (occurrence: None)
  Receive Date: 20090717
  Receipt Date: 20070810
  Transmission Date: 20100115
  Serious: Yes (Hospitalization, Other)
  Sender: FDA-Public Use
  Company Number: US-ASTRAZENECA-2006UW24773

PATIENT
  Age: 618 Month
  Sex: Male
  Weight: 101.2 kg

DRUGS (32)
  1. SEROQUEL [Suspect]
     Indication: DEPRESSION
     Dosage: 25-500 MG
     Route: 048
     Dates: start: 19971217, end: 20070523
  2. SEROQUEL [Suspect]
     Indication: INSOMNIA
     Dosage: 25-500 MG
     Route: 048
     Dates: start: 19971217, end: 20070523
  3. SEROQUEL [Suspect]
     Dosage: 25 - 100 MG
     Route: 048
     Dates: start: 20030101, end: 20050101
  4. SEROQUEL [Suspect]
     Dosage: 25 - 100 MG
     Route: 048
     Dates: start: 20030101, end: 20050101
  5. ABACAVIR [Concomitant]
     Route: 048
  6. EFAVIRENZ [Concomitant]
     Route: 048
  7. FLUOXETINE HCL [Concomitant]
     Route: 048
  8. GEMFIBROZIL [Concomitant]
     Dosage: 600-2400 MG
     Route: 048
  9. ASPART HUMAN INSULIN [Concomitant]
     Dosage: 6-65 UNITS
     Route: 058
  10. GLARGINE HUMAN INSULIN [Concomitant]
     Dosage: 21-200 MG
     Route: 058
  11. NAPROXEN [Concomitant]
     Route: 048
  12. PSYLLIUM HYDRO-MUCILLOID [Concomitant]
     Dosage: 1 TABLESPOON DAILY
     Route: 048
  13. SIMVASTIN [Concomitant]
     Route: 048
  14. MUPIROCIN [Concomitant]
     Dosage: FREQUENCY: DAILY
     Route: 061
  15. THIAMINE HCL [Concomitant]
     Route: 048
  16. ROSIGLITAZONE MALEATE [Concomitant]
     Dosage: 1/2 TAB. DAILY
     Route: 048
  17. OXYCODONE [Concomitant]
     Route: 048
  18. NPH HUMAN INSULIN [Concomitant]
     Dosage: 55-75 UNIT
     Route: 058
  19. FOLIC ACID [Concomitant]
     Route: 048
  20. ETODOLAC [Concomitant]
     Route: 048
  21. ALO-VESTA [Concomitant]
     Dosage: DAILY
     Route: 061
  22. IBUPROFEN [Concomitant]
     Dosage: 400-2400 MG
     Route: 048
  23. NEVIRAPINE [Concomitant]
     Route: 048
  24. TESTOSTERONE [Concomitant]
     Dosage: DAILY
     Route: 061
  25. ACETAMINOPHEN [Concomitant]
     Route: 048
  26. MEGESTROL ACETATE [Concomitant]
     Dosage: 4 TEASPOONFUL DAILY
     Route: 048
  27. STAVUDINE [Concomitant]
     Route: 048
  28. LOPERAMIDE HYDROCHLORIDE [Concomitant]
     Dosage: 800-1200 MG 4-6 HOURS
     Route: 048
  29. LORATADINE [Concomitant]
     Route: 048
  30. DIPHENHYDRAMINE HCL [Concomitant]
     Route: 048
  31. CIMETIDINE [Concomitant]
     Route: 048
  32. LAMIVUDINE [Concomitant]
     Route: 048

REACTIONS (6)
  - DIABETES MELLITUS [None]
  - DIABETIC FOOT [None]
  - DIABETIC NEPHROPATHY [None]
  - DIABETIC NEUROPATHY [None]
  - HYPERGLYCAEMIA [None]
  - PANCREATITIS [None]
